FAERS Safety Report 6806111-5 (Version None)
Quarter: 2010Q2

REPORT INFORMATION
  Report Type: 
  Country: None (occurrence: None)
  Receive Date: 20100629
  Receipt Date: 20071218
  Transmission Date: 20101027
  Serious: No
  Sender: FDA-Public Use
  Company Number: US-PFIZER INC-2007106306

PATIENT
  Sex: Male
  Weight: 90.72 kg

DRUGS (3)
  1. ALDACTONE [Suspect]
     Indication: POLYURIA
  2. ANTIHYPERTENSIVES [Concomitant]
  3. CARDIOVASCULAR SYSTEM DRUGS [Concomitant]

REACTIONS (2)
  - GYNAECOMASTIA [None]
  - SEXUAL DYSFUNCTION [None]
